FAERS Safety Report 4546442-5 (Version None)
Quarter: 2005Q1

REPORT INFORMATION
  Report Type: 
  Country: None (occurrence: None)
  Receive Date: 20050103
  Receipt Date: 20041216
  Transmission Date: 20050727
  Serious: Yes (Other)
  Sender: FDA-Public Use
  Company Number: USA041183237

PATIENT
  Age: 60 Year
  Sex: Female
  Weight: 65 kg

DRUGS (2)
  1. CYMBALTA [Suspect]
     Indication: FIBROMYALGIA
     Dosage: 40 MG
     Dates: start: 20041012, end: 20041018
  2. SINGULAIR (MONTELUKAST) [Concomitant]

REACTIONS (5)
  - ABDOMINAL PAIN [None]
  - CONTRAST MEDIA REACTION [None]
  - HEPATITIS [None]
  - LIVER FUNCTION TEST ABNORMAL [None]
  - LIVER TENDERNESS [None]
